FAERS Safety Report 7837198-9 (Version None)
Quarter: 2011Q4

REPORT INFORMATION
  Report Type: 
  Country: None (occurrence: None)
  Receive Date: 20111024
  Receipt Date: 20110314
  Transmission Date: 20120403
  Serious: No
  Sender: FDA-Public Use
  Company Number: US-ABBOTT-11P-163-0712360-00

PATIENT
  Sex: Female
  Weight: 56.75 kg

DRUGS (3)
  1. NORETHINDRONE [Suspect]
     Indication: METRORRHAGIA
     Dates: start: 20110201
  2. LUPRON DEPOT [Suspect]
     Indication: ENDOMETRIOSIS
     Dates: start: 20101101
  3. NORETHINDRONE [Suspect]
     Indication: ABDOMINAL DISTENSION
     Dates: start: 20110201

REACTIONS (6)
  - METRORRHAGIA [None]
  - ABDOMINAL DISTENSION [None]
  - DYSPNOEA [None]
  - HOT FLUSH [None]
  - ASTHMA [None]
  - MOOD ALTERED [None]
